FAERS Safety Report 9450094 (Version 1)
Quarter: 2013Q3

REPORT INFORMATION
  Report Type: Spontaneous
  Country: US (occurrence: US)
  Receive Date: 20130809
  Receipt Date: 20130809
  Transmission Date: 20140515
  Serious: No
  Sender: FDA-Public Use
  Company Number: US-AMGEN-USASP2013020709

PATIENT
  Age: 39 Year
  Sex: Female
  Weight: 94.09 kg

DRUGS (12)
  1. NPLATE [Suspect]
     Indication: IMMUNE THROMBOCYTOPENIC PURPURA
     Dosage: 250 MUG, QWK
     Route: 058
  2. ALDACTONE                          /00006201/ [Concomitant]
  3. COPAXONE [Concomitant]
  4. COUMADIN                           /00014802/ [Concomitant]
  5. LASIX                              /00032601/ [Concomitant]
  6. LEVOTHYROXINE [Concomitant]
  7. METOPROLOL [Concomitant]
  8. PROTONIX [Concomitant]
  9. RITUXAN [Concomitant]
  10. TRILEPTAL [Concomitant]
  11. VENOFER [Concomitant]
  12. ZONEGRAN [Concomitant]

REACTIONS (3)
  - Insomnia [Recovered/Resolved]
  - Headache [Recovered/Resolved]
  - Arthralgia [Not Recovered/Not Resolved]
